FAERS Safety Report 14796281 (Version 2)
Quarter: 2018Q3

REPORT INFORMATION
  Report Type: Report from Study
  Country: US (occurrence: US)
  Receive Date: 20180423
  Receipt Date: 20180719
  Transmission Date: 20181010
  Serious: No
  Sender: FDA-Public Use
  Company Number: US-AMGEN-USASL2018004806

PATIENT
  Age: 48 Year
  Sex: Male

DRUGS (6)
  1. KYNAMRO [Concomitant]
     Active Substance: MIPOMERSEN SODIUM
     Indication: TYPE IIA HYPERLIPIDAEMIA
     Dosage: 200 MG, QWK
     Dates: start: 20171209
  2. EZETIMIBE. [Concomitant]
     Active Substance: EZETIMIBE
     Indication: TYPE IIA HYPERLIPIDAEMIA
     Dosage: 10 MG, QD
  3. REPATHA [Suspect]
     Active Substance: EVOLOCUMAB
     Indication: HYPERLIPIDAEMIA
  4. KYNAMRO [Concomitant]
     Active Substance: MIPOMERSEN SODIUM
     Indication: LOW DENSITY LIPOPROTEIN INCREASED
  5. REPATHA [Suspect]
     Active Substance: EVOLOCUMAB
     Indication: BLOOD CHOLESTEROL INCREASED
     Dosage: 140 MG, Q2WK
     Route: 065
     Dates: start: 20171209
  6. LIVALO [Concomitant]
     Active Substance: PITAVASTATIN CALCIUM
     Indication: TYPE IIA HYPERLIPIDAEMIA
     Dosage: 4 MG, QD

REACTIONS (6)
  - Myalgia [Unknown]
  - Musculoskeletal stiffness [Unknown]
  - Arthralgia [Unknown]
  - Joint stiffness [Unknown]
  - Nausea [Unknown]
  - Low density lipoprotein increased [Not Recovered/Not Resolved]

NARRATIVE: CASE EVENT DATE: 201712
